FAERS Safety Report 26099296 (Version 1)
Quarter: 2025Q4

REPORT INFORMATION
  Report Type: Spontaneous
  Country: US (occurrence: US)
  Receive Date: 20251128
  Receipt Date: 20251128
  Transmission Date: 20260117
  Serious: No
  Sender: UNICHEM
  Company Number: US-UNICHEM LABORATORIES LIMITED-UCM202411-001519

PATIENT

DRUGS (1)
  1. AMLODIPINE [Suspect]
     Active Substance: AMLODIPINE BESYLATE
     Indication: Blood pressure abnormal
     Dosage: UNKNOWN,UNKNOWN
     Route: 065

REACTIONS (5)
  - Sluggishness [Unknown]
  - Somnolence [Unknown]
  - Swollen tongue [Unknown]
  - Fatigue [Unknown]
  - Limb discomfort [Unknown]
